FAERS Safety Report 6868296-4 (Version None)
Quarter: 2010Q3

REPORT INFORMATION
  Report Type: 
  Country: None (occurrence: None)
  Receive Date: 20100722
  Receipt Date: 20080609
  Transmission Date: 20110219
  Serious: Yes (Other)
  Sender: FDA-Public Use
  Company Number: US-PFIZER INC-2008041975

PATIENT
  Sex: Female
  Weight: 68 kg

DRUGS (2)
  1. CHANTIX [Suspect]
     Indication: EX-TOBACCO USER
     Dates: start: 20071205, end: 20080204
  2. DIPROLENE AF [Concomitant]

REACTIONS (2)
  - DEPRESSION [None]
  - LOSS OF LIBIDO [None]
